FAERS Safety Report 18868122 (Version 2)
Quarter: 2022Q3

REPORT INFORMATION
  Report Type: Spontaneous
  Country: US (occurrence: US)
  Receive Date: 20210209
  Receipt Date: 20220908
  Transmission Date: 20221027
  Serious: Yes (Other)
  Sender: FDA-Public Use
  Company Number: US-SA-SAC20210205002320

PATIENT
  Age: 43 Year
  Sex: Female

DRUGS (2)
  1. ZANTAC [Suspect]
     Active Substance: RANITIDINE HYDROCHLORIDE
     Indication: Dyspepsia
     Dosage: 150 MG
     Dates: start: 199003, end: 202004
  2. ZANTAC [Suspect]
     Active Substance: RANITIDINE HYDROCHLORIDE
     Indication: Hyperchlorhydria

REACTIONS (4)
  - Breast cancer female [Unknown]
  - Thyroid cancer stage 0 [Unknown]
  - Thyroid disorder [Unknown]
  - Breast disorder [Unknown]

NARRATIVE: CASE EVENT DATE: 20050401
